FAERS Safety Report 8071120 (Version 5)
Quarter: 2013Q3

REPORT INFORMATION
  Report Type: Spontaneous
  Country: US (occurrence: US)
  Receive Date: 20110805
  Receipt Date: 20130821
  Transmission Date: 20140515
  Serious: Yes (Hospitalization)
  Sender: FDA-Public Use
  Company Number: US-GLAXOSMITHKLINE-A0894173A

PATIENT
  Age: 72 Year
  Sex: Male
  Weight: 94.5 kg

DRUGS (1)
  1. AVANDIA [Suspect]
     Indication: DIABETES MELLITUS
     Route: 048
     Dates: start: 200608, end: 200707

REACTIONS (6)
  - Myocardial infarction [Unknown]
  - Coronary artery disease [Unknown]
  - Cardiac failure congestive [Unknown]
  - Acute coronary syndrome [Unknown]
  - Cerebrovascular accident [Unknown]
  - Cardiovascular disorder [Unknown]
